FAERS Safety Report 7810772-1 (Version None)
Quarter: 2011Q4

REPORT INFORMATION
  Report Type: 
  Country: None (occurrence: None)
  Receive Date: 20111006
  Receipt Date: 20110923
  Transmission Date: 20120403
  Serious: Yes (Hospitalization, Other)
  Sender: FDA-Public Use
  Company Number: 2010MA004628

PATIENT
  Sex: Female
  Weight: 58.9676 kg

DRUGS (41)
  1. TEMAZEPAM [Concomitant]
  2. ZOLPIDEM [Concomitant]
  3. ZITHROMAX [Concomitant]
  4. COUGH SYRUP [Concomitant]
  5. AMLODIPINE [Concomitant]
  6. METOPROLOL TARTRATE [Concomitant]
  7. SIALAGOGUE [Concomitant]
  8. CALCIUM WITH VITAMIN D [Concomitant]
  9. ASPIRIN/CAFFEINE [Concomitant]
  10. METOCLOPRAMIDE [Suspect]
     Indication: NAUSEA
     Dosage: 10 MG, TID, PO
     Route: 048
     Dates: start: 20050105, end: 20090501
  11. METOCLOPRAMIDE [Suspect]
     Indication: DIABETIC GASTROPARESIS
     Dosage: 10 MG, TID, PO
     Route: 048
     Dates: start: 20050105, end: 20090501
  12. METOCLOPRAMIDE [Suspect]
     Indication: GASTROOESOPHAGEAL REFLUX DISEASE
     Dosage: 10 MG, TID, PO
     Route: 048
     Dates: start: 20050105, end: 20090501
  13. APAP TAB [Concomitant]
  14. OMEPRAZOLE [Concomitant]
  15. ATENOLOL [Concomitant]
  16. CLORAZEPATE DIPOTASSIUM [Concomitant]
  17. PROTONIX [Concomitant]
  18. CLONIDINE [Concomitant]
  19. ALPRAZOLAM [Concomitant]
  20. PROPOXYPHENE HYDROCHLORIDE [Concomitant]
  21. GABAPENTIN [Concomitant]
  22. HYDROCODONE BITARTRATE AND ACETAMINOPHEN [Concomitant]
  23. HYDRALAZINE HCL [Concomitant]
  24. SERTRALINE HYDROCHLORIDE [Concomitant]
  25. TETRABENAZINE [Concomitant]
  26. REMERON [Concomitant]
  27. MULTI-VITAMINS [Concomitant]
  28. CIPROFLOXACIN [Concomitant]
  29. NEXIUM [Concomitant]
  30. POTASSIUM [Concomitant]
  31. CLONAZLEPAM [Concomitant]
  32. FELODIPINE [Concomitant]
  33. FLUCONAZOLE [Concomitant]
  34. PILOCARPINE [Concomitant]
  35. TRIAMTERENE AND HYDROCHLOROTHIAZIDE [Concomitant]
  36. RISPERIDONE [Concomitant]
  37. IBUPROFEN [Concomitant]
  38. CYCLOBENZAPRINE [Concomitant]
  39. LOPRESSOR [Concomitant]
  40. PAXIL [Concomitant]
  41. ARTANE [Concomitant]

REACTIONS (38)
  - NAUSEA [None]
  - HEADACHE [None]
  - HEARING IMPAIRED [None]
  - ABNORMAL BEHAVIOUR [None]
  - RADICULOPATHY [None]
  - ELECTROCARDIOGRAM ST SEGMENT ABNORMAL [None]
  - NO THERAPEUTIC RESPONSE [None]
  - DYSPHAGIA [None]
  - DISEASE RECURRENCE [None]
  - EAR INFECTION [None]
  - BLOOD PRESSURE DECREASED [None]
  - POLYNEUROPATHY [None]
  - METAPLASIA [None]
  - MOVEMENT DISORDER [None]
  - DYSPEPSIA [None]
  - ANXIETY [None]
  - DRY MOUTH [None]
  - TREMOR [None]
  - PAIN IN EXTREMITY [None]
  - PALPITATIONS [None]
  - CANDIDIASIS [None]
  - BRUXISM [None]
  - AKATHISIA [None]
  - DYSPNOEA [None]
  - BLOOD PRESSURE INCREASED [None]
  - GASTROOESOPHAGEAL REFLUX DISEASE [None]
  - TONGUE DISORDER [None]
  - TARDIVE DYSKINESIA [None]
  - ABDOMINAL DISCOMFORT [None]
  - FEELING COLD [None]
  - GASTRITIS ATROPHIC [None]
  - FEELING ABNORMAL [None]
  - BURNING SENSATION [None]
  - DIZZINESS [None]
  - INSOMNIA [None]
  - SJOGREN'S SYNDROME [None]
  - DEPRESSION [None]
  - PARAESTHESIA [None]
